FAERS Safety Report 23225641 (Version 1)
Quarter: 2023Q4

REPORT INFORMATION
  Report Type: Report from Study
  Country: CA (occurrence: CA)
  Receive Date: 20231124
  Receipt Date: 20231124
  Transmission Date: 20240109
  Serious: Yes (Other)
  Sender: FDA-Public Use
  Company Number: CA-TAKEDA-2023TUS112900

PATIENT
  Age: 45 Year
  Sex: Female

DRUGS (3)
  1. VEDOLIZUMAB [Suspect]
     Active Substance: VEDOLIZUMAB
     Indication: Colitis ulcerative
     Dosage: 300 MILLIGRAM
     Route: 042
     Dates: start: 20230724
  2. VEDOLIZUMAB [Suspect]
     Active Substance: VEDOLIZUMAB
     Dosage: 300 MILLIGRAM, Q4WEEKS
     Route: 042
     Dates: start: 20231023
  3. TRAZODONE [Concomitant]
     Active Substance: TRAZODONE HYDROCHLORIDE
     Dosage: 50 MILLIGRAM
     Route: 048

REACTIONS (3)
  - Lower respiratory tract infection [Recovered/Resolved]
  - Off label use [Unknown]
  - Sinusitis [Recovered/Resolved]

NARRATIVE: CASE EVENT DATE: 20231023
